FAERS Safety Report 5997310-3 (Version None)
Quarter: 2008Q4

REPORT INFORMATION
  Report Type: 
  Country: None (occurrence: None)
  Receive Date: 20081212
  Receipt Date: 20081105
  Transmission Date: 20090506
  Serious: No
  Sender: FDA-Public Use
  Company Number: US-ABBOTT-08P-163-0486747-00

PATIENT
  Sex: Male
  Weight: 94.886 kg

DRUGS (2)
  1. HUMIRA [Suspect]
     Indication: PAIN MANAGEMENT
     Dosage: 40MG EVERY OTHER WEEK
     Dates: start: 20070806, end: 20080501
  2. CELECOXIB [Concomitant]
     Indication: PAIN MANAGEMENT

REACTIONS (1)
  - DRUG INEFFECTIVE [None]
